FAERS Safety Report 18459229 (Version 1)
Quarter: 2020Q4

REPORT INFORMATION
  Report Type: Spontaneous
  Country: FR (occurrence: FR)
  Receive Date: 20201103
  Receipt Date: 20201103
  Transmission Date: 20210114
  Serious: Yes (Hospitalization, Other)
  Sender: FDA-Public Use
  Company Number: FR-PFIZER INC-2020418047

PATIENT
  Age: 91 Year
  Sex: Female
  Weight: 70 kg

DRUGS (3)
  1. ADVILGEL [Suspect]
     Active Substance: IBUPROFEN
     Dosage: UNK
     Route: 003
     Dates: end: 20200730
  2. KARDEGIC [Suspect]
     Active Substance: ASPIRIN DL-LYSINE
     Dosage: 75 MG, 1X/DAY
     Route: 048
     Dates: end: 20200730
  3. CORTANCYL [Suspect]
     Active Substance: PREDNISONE
     Dosage: UNK
     Route: 048

REACTIONS (1)
  - Cerebral haemorrhage [Recovering/Resolving]

NARRATIVE: CASE EVENT DATE: 20200730
